FAERS Safety Report 25617450 (Version 1)
Quarter: 2025Q3

REPORT INFORMATION
  Report Type: Spontaneous
  Country: US (occurrence: None)
  Receive Date: 20250727
  Receipt Date: 20250727
  Transmission Date: 20251021
  Serious: Yes (Hospitalization)
  Sender: FDA-CTU
  Company Number: None

PATIENT
  Sex: Male

DRUGS (2)
  1. STELARA [Suspect]
     Active Substance: USTEKINUMAB
     Indication: Colitis
     Route: 058
     Dates: start: 20250314
  2. STELARA [Suspect]
     Active Substance: USTEKINUMAB
     Indication: Rectal haemorrhage

REACTIONS (2)
  - Viral infection [None]
  - Colitis ulcerative [None]
